FAERS Safety Report 7621353-7 (Version None)
Quarter: 2011Q3

REPORT INFORMATION
  Report Type: 
  Country: None (occurrence: None)
  Receive Date: 20110719
  Receipt Date: 20110712
  Transmission Date: 20111222
  Serious: No
  Sender: FDA-Public Use
  Company Number: US-BAYER-2011-060913

PATIENT
  Sex: Female

DRUGS (1)
  1. MIRENA [Suspect]
     Dosage: 20 MCG/24HR, UNK
     Route: 015

REACTIONS (5)
  - PREGNANCY [None]
  - AMENORRHOEA [None]
  - HYPOMENORRHOEA [None]
  - BREAST TENDERNESS [None]
  - BREAST PAIN [None]
